FAERS Safety Report 8050664-9 (Version None)
Quarter: 2012Q1

REPORT INFORMATION
  Report Type: 
  Country: None (occurrence: None)
  Receive Date: 20120117
  Receipt Date: 20120117
  Transmission Date: 20120608
  Serious: No
  Sender: FDA-Public Use
  Company Number: None

PATIENT
  Age: 59 Year
  Sex: Female
  Weight: 99.79 kg

DRUGS (6)
  1. WELLBUTRIN XL [Suspect]
     Indication: STRESS
     Dosage: 1 TAB
     Dates: start: 20050101, end: 20120101
  2. WELLBUTRIN XL [Suspect]
     Indication: FEAR
     Dosage: 1 TAB
     Dates: start: 20050101, end: 20120101
  3. WELLBUTRIN XL [Suspect]
     Indication: ANXIETY
     Dosage: 1 TAB
     Dates: start: 20050101, end: 20120101
  4. BUPROPION HYDROCHLORIDE [Concomitant]
     Indication: ANXIETY
     Dosage: 1 TAB
     Dates: start: 20100101, end: 20120101
  5. BUPROPION HYDROCHLORIDE [Concomitant]
     Indication: FEAR
     Dosage: 1 TAB
     Dates: start: 20100101, end: 20120101
  6. BUPROPION HYDROCHLORIDE [Concomitant]
     Indication: STRESS
     Dosage: 1 TAB
     Dates: start: 20100101, end: 20120101

REACTIONS (6)
  - NICOTINE DEPENDENCE [None]
  - DRUG INEFFECTIVE [None]
  - SCREAMING [None]
  - PRODUCT SUBSTITUTION ISSUE [None]
  - ANXIETY [None]
  - AGITATION [None]
